FAERS Safety Report 7597314 (Version 14)
Quarter: 2014Q1

REPORT INFORMATION
  Report Type: Spontaneous
  Country: US (occurrence: US)
  Receive Date: 20100920
  Receipt Date: 20140314
  Transmission Date: 20141002
  Serious: Yes (Hospitalization, Other)
  Sender: FDA-Public Use
  Company Number: US-ASTRAZENECA-2009SE25948

PATIENT
  Age: 685 Month
  Sex: Female
  Weight: 77.1 kg

DRUGS (13)
  1. SEROQUEL [Suspect]
     Indication: BIPOLAR DISORDER
     Route: 048
     Dates: start: 2005
  2. SEROQUEL [Suspect]
     Indication: BIPOLAR DISORDER
     Route: 048
  3. SEROQUEL [Suspect]
     Indication: BIPOLAR DISORDER
     Route: 048
  4. SEROQUEL [Suspect]
     Indication: BIPOLAR DISORDER
     Route: 048
     Dates: end: 2013
  5. SEROQUEL [Suspect]
     Indication: BIPOLAR DISORDER
     Dosage: 1200MG, 400MG IN THE MORNING AND 800MG AT NIGHT
     Route: 048
     Dates: start: 2013
  6. SEROQUEL [Suspect]
     Indication: BIPOLAR DISORDER
     Route: 048
  7. CRESTOR [Suspect]
     Indication: HYPERCHOLESTEROLAEMIA
     Route: 048
  8. CRESTOR [Suspect]
     Indication: HYPERCHOLESTEROLAEMIA
     Route: 048
  9. GENERIC SYNTHROID [Concomitant]
     Indication: THYROID DISORDER
  10. CLONODINE [Concomitant]
     Indication: PRODUCT USED FOR UNKNOWN INDICATION
  11. LITHIUM [Concomitant]
     Indication: BIPOLAR DISORDER
  12. EFFEXOR [Concomitant]
     Indication: DEPRESSION
  13. ATENOL [Concomitant]
     Indication: PALPITATIONS
     Dates: start: 2011

REACTIONS (36)
  - Bipolar disorder [Unknown]
  - Lower limb fracture [Unknown]
  - Neoplasm malignant [Unknown]
  - Drug withdrawal syndrome [Unknown]
  - Road traffic accident [Unknown]
  - Crying [Unknown]
  - Antipsychotic drug level below therapeutic [Recovered/Resolved]
  - Mania [Unknown]
  - Nervousness [Unknown]
  - Aphagia [Unknown]
  - Malaise [Unknown]
  - Hyperhidrosis [Unknown]
  - Fall [Unknown]
  - Joint injury [Unknown]
  - Memory impairment [Unknown]
  - Insomnia [Unknown]
  - Depression [Unknown]
  - Mood swings [Unknown]
  - Diarrhoea [Unknown]
  - Social avoidant behaviour [Unknown]
  - Altered state of consciousness [Unknown]
  - Impaired driving ability [Unknown]
  - Pressure of speech [Unknown]
  - Abnormal behaviour [Unknown]
  - Speech disorder [Unknown]
  - General physical health deterioration [Unknown]
  - Malaise [Unknown]
  - Restlessness [Unknown]
  - Vomiting [Unknown]
  - Lethargy [Unknown]
  - Palpitations [Unknown]
  - Blood cholesterol increased [Unknown]
  - Movement disorder [Unknown]
  - Intentional drug misuse [Unknown]
  - Off label use [Unknown]
  - Drug dose omission [Unknown]
